APPROVED DRUG PRODUCT: HYDRALAZINE HYDROCHLORIDE
Active Ingredient: HYDRALAZINE HYDROCHLORIDE
Strength: 25MG
Dosage Form/Route: TABLET;ORAL
Application: A040858 | Product #002 | TE Code: AA
Applicant: HERITAGE PHARMACEUTICALS INC
Approved: Feb 26, 2010 | RLD: No | RS: No | Type: RX